FAERS Safety Report 9820786 (Version 2)
Quarter: 2014Q1

REPORT INFORMATION
  Report Type: Spontaneous
  Country: FR (occurrence: FR)
  Receive Date: 20140116
  Receipt Date: 20140128
  Transmission Date: 20141002
  Serious: Yes (Life-Threatening, Hospitalization, Other)
  Sender: FDA-Public Use
  Company Number: FR-PFIZER INC-2014010940

PATIENT
  Age: 57 Year
  Sex: Female
  Weight: 52 kg

DRUGS (3)
  1. DOXORUBICIN HCL [Suspect]
     Indication: ENDOMETRIAL SARCOMA METASTATIC
     Dosage: 96 MG, CYCLIC ON DAY 1 OF EACH CYCLE
     Route: 042
     Dates: start: 20130916, end: 20131125
  2. HOLOXAN [Suspect]
     Indication: ENDOMETRIAL SARCOMA METASTATIC
     Dosage: 3880 MG, CYCLIC ON DAY 1, 2 AND 3 OF EACH CYCLE
     Route: 042
     Dates: start: 20130916, end: 20131127
  3. NEULASTA [Concomitant]

REACTIONS (9)
  - Febrile bone marrow aplasia [Not Recovered/Not Resolved]
  - Septic shock [Not Recovered/Not Resolved]
  - Neuromyopathy [Unknown]
  - Extremity necrosis [Not Recovered/Not Resolved]
  - Jaundice cholestatic [Recovered/Resolved]
  - Multi-organ failure [Unknown]
  - Acute respiratory distress syndrome [Unknown]
  - Subcutaneous abscess [Unknown]
  - Purpura fulminans [Unknown]
